FAERS Safety Report 9146315 (Version 1)
Quarter: 2013Q1

REPORT INFORMATION
  Report Type: Spontaneous
  Country: US (occurrence: None)
  Receive Date: 20130227
  Receipt Date: 20130227
  Transmission Date: 20140127
  Serious: Yes (Life-Threatening, Hospitalization)
  Sender: FDA-Public Use
  Company Number: None

PATIENT
  Age: 88 Year
  Sex: Male
  Weight: 84.5 kg

DRUGS (2)
  1. KETOROLAC TROMETHAMINE [Suspect]
     Dosage: 30 MG ONCE SQ
     Route: 058
     Dates: start: 20130109, end: 20130109
  2. NAPROXEN [Suspect]
     Dosage: 250 MG EVERY DAY PO
     Route: 048
     Dates: start: 20121123, end: 20130111

REACTIONS (9)
  - Confusional state [None]
  - Dizziness [None]
  - Haemorrhage [None]
  - Anaemia [None]
  - Diarrhoea [None]
  - Hypotension [None]
  - Tachycardia [None]
  - Gastric haemorrhage [None]
  - Metastasis [None]
